FAERS Safety Report 10419779 (Version 1)
Quarter: 2014Q3

REPORT INFORMATION
  Report Type: Spontaneous
  Country: US (occurrence: None)
  Receive Date: 20140828
  Receipt Date: 20140828
  Transmission Date: 20150326
  Serious: Yes (Death)
  Sender: FDA-Public Use
  Company Number: 2502492

PATIENT

DRUGS (1)
  1. VANCOMYCIN HYDROCHLORIDE FOR INJECTION USP (VANCOMYCIN HYDROCHLORIDE) [Suspect]
     Active Substance: VANCOMYCIN HYDROCHLORIDE
     Dosage: BETWEEN 1 TO 2 GRAMS, UNKNOWN, UNKNOWN, TOPICAL
     Route: 061

REACTIONS (3)
  - Haemorrhage [None]
  - Hypotension [None]
  - Off label use [None]
